FAERS Safety Report 25455601 (Version 1)
Quarter: 2025Q2

REPORT INFORMATION
  Report Type: Spontaneous
  Country: CN (occurrence: CN)
  Receive Date: 20250619
  Receipt Date: 20250619
  Transmission Date: 20250716
  Serious: Yes (Other)
  Sender: AMGEN
  Company Number: CN-AMGEN-CHNSP2025117709

PATIENT

DRUGS (8)
  1. CARFILZOMIB [Suspect]
     Active Substance: CARFILZOMIB
     Indication: Plasma cell myeloma
     Route: 040
  2. CARFILZOMIB [Suspect]
     Active Substance: CARFILZOMIB
     Route: 040
  3. MITOXANTRONE [Suspect]
     Active Substance: MITOXANTRONE HYDROCHLORIDE
     Indication: Plasma cell myeloma
     Route: 040
  4. BORTEZOMIB [Concomitant]
     Active Substance: BORTEZOMIB
     Indication: Plasma cell myeloma
     Route: 040
  5. LENALIDOMIDE [Concomitant]
     Active Substance: LENALIDOMIDE
     Indication: Plasma cell myeloma
     Dosage: 25 MILLIGRAM, QD (ONCE DAILY ON DAYS 1-14)
     Route: 048
  6. POMALIDOMIDE [Concomitant]
     Active Substance: POMALIDOMIDE
     Indication: Plasma cell myeloma
     Dosage: 4 MILLIGRAM, QD ON DAYS 1-14
     Route: 048
  7. DEXAMETHASONE [Concomitant]
     Active Substance: DEXAMETHASONE
     Indication: Plasma cell myeloma
     Route: 040
  8. DARATUMUMAB [Concomitant]
     Active Substance: DARATUMUMAB
     Indication: Plasma cell myeloma

REACTIONS (13)
  - Plasma cell myeloma [Unknown]
  - Myelosuppression [Unknown]
  - Leukopenia [Unknown]
  - Neutropenia [Unknown]
  - Thrombocytopenia [Unknown]
  - Infection [Unknown]
  - Palpitations [Unknown]
  - Therapy partial responder [Unknown]
  - Anaemia [Unknown]
  - Diarrhoea [Unknown]
  - Fatigue [Unknown]
  - Dizziness [Unknown]
  - Nausea [Unknown]
